FAERS Safety Report 6141668-1 (Version None)
Quarter: 2009Q1

REPORT INFORMATION
  Report Type: 
  Country: None (occurrence: None)
  Receive Date: 20090331
  Receipt Date: 20090331
  Transmission Date: 20090719
  Serious: Yes (Other)
  Sender: FDA-Public Use
  Company Number: None

PATIENT
  Age: 41 Year
  Sex: Male
  Weight: 83.9154 kg

DRUGS (1)
  1. PREPARATION H WYETH [Suspect]
     Indication: HAEMORRHOIDS
     Dosage: ABOUT 2 TEASPOONS ONCE
     Dates: start: 20090325, end: 20090325

REACTIONS (1)
  - THERMAL BURN [None]
